FAERS Safety Report 13711742 (Version 2)
Quarter: 2017Q3

REPORT INFORMATION
  Report Type: Report from Study
  Country: TW (occurrence: TW)
  Receive Date: 20170703
  Receipt Date: 20170705
  Transmission Date: 20171127
  Serious: Yes (Hospitalization)
  Sender: FDA-Public Use
  Company Number: TW-ASTRAZENECA-2017SE68271

PATIENT
  Age: 25824 Day
  Sex: Male

DRUGS (2)
  1. AZD6140 CODE NOT BROKEN [Suspect]
     Active Substance: TICAGRELOR
     Indication: CARDIOVASCULAR EVENT PROPHYLAXIS
     Route: 048
     Dates: start: 20141008, end: 20160224
  2. AZD6140 CODE NOT BROKEN [Suspect]
     Active Substance: TICAGRELOR
     Indication: CARDIOVASCULAR EVENT PROPHYLAXIS
     Route: 048
     Dates: start: 20160224

REACTIONS (1)
  - Pyelonephritis acute [Unknown]

NARRATIVE: CASE EVENT DATE: 20170628
